FAERS Safety Report 23129066 (Version 1)
Quarter: 2023Q4

REPORT INFORMATION
  Report Type: Spontaneous
  Country: ES (occurrence: None)
  Receive Date: 20231031
  Receipt Date: 20231031
  Transmission Date: 20240109
  Serious: Yes (Other)
  Sender: FDA-Public Use
  Company Number: ES-MLMSERVICE-20190430-1736959-1

PATIENT
  Age: 3 Year
  Sex: Male

DRUGS (2)
  1. METHOTREXATE [Suspect]
     Active Substance: METHOTREXATE
     Indication: Langerhans^ cell histiocytosis
  2. MERCAPTOPURINE [Suspect]
     Active Substance: MERCAPTOPURINE
     Indication: Langerhans^ cell histiocytosis

REACTIONS (9)
  - Mesenteritis [Recovered/Resolved]
  - Malabsorption [Recovered/Resolved]
  - Protein-losing gastroenteropathy [Recovered/Resolved]
  - Respiratory syncytial virus infection [Recovered/Resolved]
  - Norovirus infection [Recovered/Resolved]
  - Febrile neutropenia [Recovered/Resolved]
  - Mycobacterial infection [Recovered/Resolved]
  - Enteritis [Recovered/Resolved]
  - Product use in unapproved indication [Unknown]
